FAERS Safety Report 20214410 (Version 1)
Quarter: 2021Q4

REPORT INFORMATION
  Report Type: Spontaneous
  Country: JP (occurrence: JP)
  Receive Date: 20211221
  Receipt Date: 20211221
  Transmission Date: 20220303
  Serious: Yes (Other)
  Sender: FDA-Public Use
  Company Number: JP-AMERICAN REGENT INC-2021003327

PATIENT
  Age: 30 Year
  Sex: Female

DRUGS (5)
  1. FERINJECT [Suspect]
     Active Substance: FERRIC CARBOXYMALTOSE
     Indication: Iron deficiency anaemia
     Dosage: FIRST DOSE (500 MILLIGRAM)
     Route: 042
     Dates: start: 20211112, end: 20211112
  2. FERINJECT [Suspect]
     Active Substance: FERRIC CARBOXYMALTOSE
     Dosage: SECOND DOSE (500 MILLIGRAM)
     Route: 042
     Dates: start: 20211119, end: 20211119
  3. FERINJECT [Suspect]
     Active Substance: FERRIC CARBOXYMALTOSE
     Dosage: THIRD DOSE (500 MILLIGRAM)
     Route: 042
     Dates: start: 20211126, end: 20211126
  4. MAGNESIUM OXIDE [Concomitant]
     Active Substance: MAGNESIUM OXIDE
     Indication: Product used for unknown indication
     Dosage: 1980 MILLIGRAM, 1 IN 1 D
     Route: 048
     Dates: start: 20210623
  5. CALONAL [Concomitant]
     Active Substance: ACETAMINOPHEN
     Indication: Product used for unknown indication
     Dosage: 600 MILLIGRAM, 1 IN 1 D
     Route: 048
     Dates: start: 20210614

REACTIONS (6)
  - Thrombocytopenia [Unknown]
  - Maternal exposure during pregnancy [Unknown]
  - Choking sensation [Unknown]
  - Respiratory rate increased [Unknown]
  - Dyspnoea [Unknown]
  - Abdominal pain upper [Unknown]

NARRATIVE: CASE EVENT DATE: 20211112
